FAERS Safety Report 21500318 (Version 1)
Quarter: 2022Q4

REPORT INFORMATION
  Report Type: Spontaneous
  Country: US (occurrence: US)
  Receive Date: 20221024
  Receipt Date: 20221024
  Transmission Date: 20230113
  Serious: Yes (Other)
  Sender: FDA-Public Use
  Company Number: US-NOVOPROD-960853

PATIENT
  Age: 40 Year
  Sex: Female
  Weight: 74.9 kg

DRUGS (2)
  1. SAXENDA [Suspect]
     Active Substance: LIRAGLUTIDE
     Indication: Weight control
     Dosage: 3 MG, QD
     Route: 058
     Dates: start: 201705, end: 20200403
  2. MINERALS\VITAMINS [Concomitant]
     Active Substance: MINERALS\VITAMINS
     Indication: Vitamin supplementation
     Dosage: UNK UNK, QD
     Route: 048
     Dates: start: 201705

REACTIONS (3)
  - Caesarean section [Recovered/Resolved]
  - Prenatal screening test abnormal [Unknown]
  - Maternal exposure during pregnancy [Recovered/Resolved]

NARRATIVE: CASE EVENT DATE: 20200101
